FAERS Safety Report 23736098 (Version 1)
Quarter: 2024Q2

REPORT INFORMATION
  Report Type: Spontaneous
  Country: US (occurrence: None)
  Receive Date: 20240411
  Receipt Date: 20240411
  Transmission Date: 20240716
  Serious: No
  Sender: FDA-Public Use
  Company Number: None

PATIENT
  Age: 79 Year
  Sex: Female

DRUGS (2)
  1. LENALIDOMIDE [Suspect]
     Active Substance: LENALIDOMIDE
     Indication: Plasma cell myeloma
     Route: 048
     Dates: start: 20231222
  2. DEXAMETHASONE [Suspect]
     Active Substance: DEXAMETHASONE

REACTIONS (7)
  - Dizziness [None]
  - Insomnia [None]
  - Blood pressure increased [None]
  - Nausea [None]
  - Blood glucose increased [None]
  - Vertigo [None]
  - Dehydration [None]

NARRATIVE: CASE EVENT DATE: 20240410
